FAERS Safety Report 16742222 (Version 2)
Quarter: 2019Q3

REPORT INFORMATION
  Report Type: Report from Study
  Country: IT (occurrence: IT)
  Receive Date: 20190826
  Receipt Date: 20190912
  Transmission Date: 20191005
  Serious: Yes (Other)
  Sender: FDA-Public Use
  Company Number: IT-GLAXOSMITHKLINE-IT2019154425

PATIENT
  Age: 79 Year
  Sex: Female

DRUGS (4)
  1. RANITIDINE HYDROCHLORIDE. [Suspect]
     Active Substance: RANITIDINE HYDROCHLORIDE
     Indication: DRUG ABUSE
     Dosage: 600 MG, SINGLE
     Route: 048
     Dates: start: 20190610, end: 20190610
  2. KANRENOL [Suspect]
     Active Substance: CANRENOATE POTASSIUM
     Indication: DRUG ABUSE
     Dosage: IN TOTAL
     Route: 048
     Dates: start: 20190610, end: 20190610
  3. COUMADIN [Suspect]
     Active Substance: WARFARIN SODIUM
     Indication: DRUG ABUSE
     Dosage: IN TOTAL
     Route: 048
     Dates: start: 20190610, end: 20190610
  4. BISOPROLOL HEMIFUMARATE [Suspect]
     Active Substance: BISOPROLOL FUMARATE
     Indication: DRUG ABUSE
     Dosage: IN TOTAL
     Route: 048
     Dates: start: 20190610, end: 20190610

REACTIONS (3)
  - Paraesthesia oral [Recovering/Resolving]
  - Drug abuse [Recovering/Resolving]
  - Speech disorder [Recovering/Resolving]

NARRATIVE: CASE EVENT DATE: 20190610
